FAERS Safety Report 16421894 (Version 2)
Quarter: 2019Q3

REPORT INFORMATION
  Report Type: Spontaneous
  Country: DE (occurrence: DE)
  Receive Date: 20190612
  Receipt Date: 20190919
  Transmission Date: 20191004
  Serious: Yes (Death)
  Sender: FDA-Public Use
  Company Number: DE-PFIZER INC-2019242584

PATIENT
  Age: 26 Year
  Sex: Male

DRUGS (6)
  1. FENTANYL. [Suspect]
     Active Substance: FENTANYL
  2. DIAZEPAM. [Suspect]
     Active Substance: DIAZEPAM
  3. NORDAZEPAM [Suspect]
     Active Substance: NORDAZEPAM
  4. FLUOXETINE [Suspect]
     Active Substance: FLUOXETINE HYDROCHLORIDE
  5. TILIDINE [Suspect]
     Active Substance: TILIDINE
  6. U-47700 [Suspect]
     Active Substance: U-47700

REACTIONS (1)
  - Toxicity to various agents [Fatal]
